FAERS Safety Report 9715861 (Version 1)
Quarter: 2013Q4

REPORT INFORMATION
  Report Type: Spontaneous
  Country: US (occurrence: None)
  Receive Date: 20131126
  Receipt Date: 20131126
  Transmission Date: 20140711
  Serious: Yes (Other)
  Sender: FDA-Public Use
  Company Number: None

PATIENT
  Age: 42 Year
  Sex: Female
  Weight: 83.92 kg

DRUGS (1)
  1. METRONIDAZOLE 500 MG / 100 ML INTRAVENOUS INFUSION [Suspect]
     Indication: GASTROINTESTINAL BACTERIAL INFECTION
     Route: 048
     Dates: start: 20131119, end: 20131124

REACTIONS (7)
  - Confusional state [None]
  - Mental impairment [None]
  - Balance disorder [None]
  - Vision blurred [None]
  - Paraesthesia [None]
  - Hypersomnia [None]
  - Feeling abnormal [None]
